FAERS Safety Report 4359152-4 (Version None)
Quarter: 2004Q2

REPORT INFORMATION
  Report Type: 
  Country: None (occurrence: None)
  Receive Date: 20040512
  Receipt Date: 20040427
  Transmission Date: 20050107
  Serious: Yes (Hospitalization)
  Sender: FDA-Public Use
  Company Number: US_0404102636

PATIENT
  Age: 63 Year
  Sex: Male
  Weight: 81 kg

DRUGS (2)
  1. HUMALOG [Suspect]
     Indication: DIABETES MELLITUS
     Dosage: UNK
     Route: 065
     Dates: start: 19950101
  2. HUMULIN N [Suspect]
     Indication: DIABETES MELLITUS
     Dosage: 44 U DAY
     Dates: start: 19590101

REACTIONS (3)
  - AORTIC VALVE REPLACEMENT [None]
  - BLINDNESS [None]
  - DOUBLE VESSEL BYPASS GRAFT [None]
